FAERS Safety Report 5477792-6 (Version None)
Quarter: 2007Q4

REPORT INFORMATION
  Report Type: 
  Country: None (occurrence: None)
  Receive Date: 20071002
  Receipt Date: 20070926
  Transmission Date: 20080405
  Serious: Yes (Hospitalization)
  Sender: FDA-Public Use
  Company Number: E2020-01539-SPO-FR

PATIENT
  Age: 85 Year
  Sex: Female

DRUGS (6)
  1. ARICEPT [Suspect]
     Indication: DEMENTIA ALZHEIMER'S TYPE
     Dosage: 10 MG, 1 IN 1 D, ORAL
     Route: 048
     Dates: start: 20030101
  2. VALSARTAN AND HYDROCHLOROTHIAZIDE [Suspect]
     Dosage: 80/12.5 MG, ORAL
     Route: 048
     Dates: start: 20030101
  3. ASPIRIN [Suspect]
     Dosage: 75 MG, ORAL
     Route: 048
     Dates: start: 20030101
  4. DIGOXIN [Concomitant]
  5. HEMIDIGOXINE                  (DIGOXIN) [Concomitant]
  6. ZOLPIDEM TARTRATE [Concomitant]

REACTIONS (5)
  - AZOTAEMIA [None]
  - DEHYDRATION [None]
  - DEPRESSED LEVEL OF CONSCIOUSNESS [None]
  - DISORIENTATION [None]
  - MALNUTRITION [None]
